FAERS Safety Report 13254488 (Version 1)
Quarter: 2017Q1

REPORT INFORMATION
  Report Type: Spontaneous
  Country: US (occurrence: US)
  Receive Date: 20170221
  Receipt Date: 20170221
  Transmission Date: 20170428
  Serious: No
  Sender: FDA-Public Use
  Company Number: US-ASTRAZENECA-2017SE15983

PATIENT
  Sex: Female

DRUGS (1)
  1. CRESTOR [Suspect]
     Active Substance: ROSUVASTATIN CALCIUM
     Route: 048

REACTIONS (6)
  - Arthritis [Unknown]
  - Depressed mood [Unknown]
  - Fatigue [Unknown]
  - Onychoclasis [Unknown]
  - Asthenia [Unknown]
  - Alopecia [Unknown]
